FAERS Safety Report 5873743-0 (Version None)
Quarter: 2008Q3

REPORT INFORMATION
  Report Type: 
  Country: None (occurrence: None)
  Receive Date: 20080903
  Receipt Date: 20080903
  Transmission Date: 20090109
  Serious: Yes (Hospitalization)
  Sender: FDA-Public Use
  Company Number: None

PATIENT
  Age: 24 Year
  Sex: Male
  Weight: 77 kg

DRUGS (1)
  1. ACETYLCYSTEINE [Suspect]
     Indication: OVERDOSE
     Dosage: 11500 MG ONCE IV
     Route: 042
     Dates: start: 20080901, end: 20080901

REACTIONS (3)
  - PRURITUS [None]
  - RASH [None]
  - URTICARIA [None]
